FAERS Safety Report 10179177 (Version 1)
Quarter: 2014Q2

REPORT INFORMATION
  Report Type: Spontaneous
  Country: US (occurrence: None)
  Receive Date: 20140416
  Receipt Date: 20140416
  Transmission Date: 20141212
  Serious: Yes (Other)
  Sender: FDA-Public Use
  Company Number: 163-POMAL-13124764

PATIENT
  Age: 58 Year
  Sex: Female

DRUGS (6)
  1. POMALYST (POMALIDOMIDE) (CAPSULES) [Suspect]
     Indication: PLASMA CELL MYELOMA
     Dosage: 21 IN 28 D, PO TEMPORARILY INTERRUPTED
     Route: 048
     Dates: start: 20131127
  2. TACROLIMUS (TACROLIMUS) [Concomitant]
  3. CALCIUM CARBONATE (CALCIUM CARBONATE) (CALCIUM CARBONATE) [Concomitant]
  4. IBUPROFEN (IBUPROFEN) [Concomitant]
  5. MAGNESIUM (MAGNESIUM) [Concomitant]
  6. CYMBALTA [Concomitant]

REACTIONS (1)
  - Skin discolouration [None]
